FAERS Safety Report 6417760-0 (Version None)
Quarter: 2009Q4

REPORT INFORMATION
  Report Type: 
  Country: None (occurrence: None)
  Receive Date: 20091027
  Receipt Date: 20091027
  Transmission Date: 20100525
  Serious: Yes (Hospitalization)
  Sender: FDA-Public Use
  Company Number: None

PATIENT
  Sex: Male
  Weight: 83.6 kg

DRUGS (2)
  1. CETUXIMAB 250 MG/M2 [Suspect]
     Dosage: 525 MG IV WEEKLY
     Route: 042
     Dates: start: 20090928
  2. CISPLATIN [Suspect]
     Dosage: 210 MG/M2 IV X 7
     Route: 042
     Dates: start: 20090914

REACTIONS (4)
  - DELIRIUM [None]
  - MUCOSAL INFLAMMATION [None]
  - PYREXIA [None]
  - VOMITING [None]
